FAERS Safety Report 6386972-7 (Version None)
Quarter: 2009Q4

REPORT INFORMATION
  Report Type: 
  Country: None (occurrence: None)
  Receive Date: 20091002
  Receipt Date: 20090921
  Transmission Date: 20100525
  Serious: Yes (Hospitalization)
  Sender: FDA-Public Use
  Company Number: TR-WATSON-2009-07824

PATIENT
  Age: 13 Year
  Sex: Male

DRUGS (4)
  1. CEFUROXIME SODIUM [Suspect]
     Indication: UPPER RESPIRATORY TRACT INFECTION
     Dosage: 250 MG, BID
     Route: 048
  2. DEXTROMETHORPHAN HYDROBROMIDE [Suspect]
     Indication: UPPER RESPIRATORY TRACT INFECTION
     Dosage: 20 MG, BID
     Route: 048
  3. ACETAMINOPHEN [Suspect]
     Indication: UPPER RESPIRATORY TRACT INFECTION
     Dosage: 500 MG, BID
     Route: 048
  4. PSEUDOEPHEDRINE HCL [Suspect]
     Indication: UPPER RESPIRATORY TRACT INFECTION
     Dosage: 30 MG, BID
     Route: 048

REACTIONS (3)
  - ARRHYTHMIA [None]
  - CONDUCTION DISORDER [None]
  - SHOCK [None]
